FAERS Safety Report 24621517 (Version 1)
Quarter: 2024Q4

REPORT INFORMATION
  Report Type: Report from Study
  Country: NL (occurrence: NL)
  Receive Date: 20241114
  Receipt Date: 20241114
  Transmission Date: 20250114
  Serious: Yes (Other)
  Sender: ABBVIE
  Company Number: NL-ABBVIE-5995370

PATIENT
  Sex: Female
  Weight: 75 kg

DRUGS (11)
  1. CARBIDOPA\LEVODOPA [Suspect]
     Active Substance: CARBIDOPA\LEVODOPA
     Indication: Parkinson^s disease
     Dosage: MD:15.0 ML, CD: 2.5ML/H, ED:3.00ML?DURATION TEXT: REMAINS AT 16 HOURS
     Route: 050
     Dates: start: 20240418, end: 20240604
  2. CARBIDOPA\LEVODOPA [Suspect]
     Active Substance: CARBIDOPA\LEVODOPA
     Dosage: MD:15.0 ML, CD: 2.5ML/H, ED:3.00ML?DURATION TEXT: REMAINS AT 16 HOURS
     Route: 050
     Dates: start: 20231228, end: 20240418
  3. CARBIDOPA\LEVODOPA [Suspect]
     Active Substance: CARBIDOPA\LEVODOPA
     Dosage: MD:15.0 ML, CD: 2.6ML/H, ED:3.00ML?DURATION TEXT: REMAINS AT 16 HOURS
     Route: 050
     Dates: start: 20231221, end: 20231228
  4. CARBIDOPA\LEVODOPA [Suspect]
     Active Substance: CARBIDOPA\LEVODOPA
     Dosage: DURATION TEXT: REMAINS AT 16 HOURS
     Route: 050
     Dates: start: 20210202
  5. CARBIDOPA\LEVODOPA [Suspect]
     Active Substance: CARBIDOPA\LEVODOPA
     Dosage: MD:15.0 ML, CD: 2.5ML/H, ED:3.00ML?DURATION TEXT: REMAINS AT 16 HOURS
     Route: 050
     Dates: start: 20240618
  6. CARBIDOPA\LEVODOPA [Suspect]
     Active Substance: CARBIDOPA\LEVODOPA
     Dosage: MD:15.0 ML, CD: 2.5ML/H, ED:3.00ML?DURATION TEXT: REMAINS AT 16 HOURS
     Route: 050
     Dates: start: 20240604, end: 20240618
  7. SYMMETREL [Concomitant]
     Active Substance: AMANTADINE HYDROCHLORIDE
     Indication: Parkinson^s disease
  8. Molaxol [Concomitant]
     Indication: Abnormal faeces
  9. BENSERAZIDE HYDROCHLORIDE\LEVODOPA [Concomitant]
     Active Substance: BENSERAZIDE HYDROCHLORIDE\LEVODOPA
     Indication: Parkinson^s disease
     Dosage: TIME INTERVAL: 0.33333333 DAYS: 250 MILLIGRAM
     Route: 048
     Dates: start: 201403
  10. BENSERAZIDE HYDROCHLORIDE\LEVODOPA [Concomitant]
     Active Substance: BENSERAZIDE HYDROCHLORIDE\LEVODOPA
     Indication: Parkinson^s disease
     Route: 048
     Dates: start: 201902
  11. MOVICOLON [Concomitant]
     Active Substance: POLYETHYLENE GLYCOL 3350\POTASSIUM CHLORIDE\SODIUM BICARBONATE\SODIUM CHLORIDE
     Indication: Gastrointestinal motility disorder
     Dosage: 1 SACHET

REACTIONS (18)
  - Cataract [Unknown]
  - Dysgraphia [Not Recovered/Not Resolved]
  - Hyperkinesia [Not Recovered/Not Resolved]
  - Fine motor skill dysfunction [Not Recovered/Not Resolved]
  - Balance disorder [Not Recovered/Not Resolved]
  - Back pain [Not Recovered/Not Resolved]
  - Gait disturbance [Not Recovered/Not Resolved]
  - General physical health deterioration [Not Recovered/Not Resolved]
  - Tension [Not Recovered/Not Resolved]
  - Restlessness [Not Recovered/Not Resolved]
  - On and off phenomenon [Not Recovered/Not Resolved]
  - Wheelchair user [Not Recovered/Not Resolved]
  - Pain [Not Recovered/Not Resolved]
  - Dyskinesia [Not Recovered/Not Resolved]
  - Loss of personal independence in daily activities [Not Recovered/Not Resolved]
  - Stress [Not Recovered/Not Resolved]
  - Unevaluable event [Not Recovered/Not Resolved]
  - Hallucination [Not Recovered/Not Resolved]
